FAERS Safety Report 9880778 (Version 1)
Quarter: 2014Q1

REPORT INFORMATION
  Report Type: Spontaneous
  Country: US (occurrence: US)
  Receive Date: 20140207
  Receipt Date: 20140207
  Transmission Date: 20141002
  Serious: No
  Sender: FDA-Public Use
  Company Number: US-PFIZER INC-2014024586

PATIENT
  Sex: Female

DRUGS (2)
  1. LYRICA [Suspect]
     Dosage: 150 MG, 3X/DAY
  2. LYRICA [Suspect]
     Dosage: UNK (20-30 CAPSULE), 1X/DAY

REACTIONS (9)
  - Overdose [Unknown]
  - Eye disorder [Unknown]
  - Feeling jittery [Unknown]
  - Balance disorder [Unknown]
  - Dizziness [Unknown]
  - Muscle twitching [Unknown]
  - Somnolence [Unknown]
  - Hypersomnia [Unknown]
  - Speech disorder [Unknown]
